FAERS Safety Report 5135962-0 (Version None)
Quarter: 2006Q4

REPORT INFORMATION
  Report Type: 
  Country: None (occurrence: None)
  Receive Date: 20061020
  Receipt Date: 20061005
  Transmission Date: 20070319
  Serious: Yes (Hospitalization)
  Sender: FDA-Public Use
  Company Number: S06-SWI-04326-01

PATIENT
  Age: 67 Year
  Sex: Male

DRUGS (8)
  1. CIPRALEX (ESCITALOPRAM) [Suspect]
     Dosage: 10 MG QD PO
     Route: 048
     Dates: end: 20060726
  2. TRAMADOL HCL [Suspect]
     Dates: start: 20060719, end: 20060726
  3. DEPAKIN (VALPROATE SODIUM) [Concomitant]
  4. CLONAZEPAM [Concomitant]
  5. NORVASC [Concomitant]
  6. SINTROM [Concomitant]
  7. XATRAL UNO (ALFUZOSIN HYDROCHLORIDE) [Concomitant]
  8. MINIRIM (DESMOPRESSIN ACETATE) [Concomitant]

REACTIONS (5)
  - CEREBELLAR SYNDROME [None]
  - COGNITIVE DISORDER [None]
  - CONDITION AGGRAVATED [None]
  - DRUG INTERACTION [None]
  - SEROTONIN SYNDROME [None]
